FAERS Safety Report 21838648 (Version 1)
Quarter: 2023Q1

REPORT INFORMATION
  Report Type: Spontaneous
  Country: US (occurrence: None)
  Receive Date: 20230107
  Receipt Date: 20230107
  Transmission Date: 20230417
  Serious: Yes (Hospitalization)
  Sender: FDA-Public Use
  Company Number: None

PATIENT
  Sex: Male

DRUGS (1)
  1. TEMOZOLOMIDE [Suspect]
     Active Substance: TEMOZOLOMIDE
     Indication: Brain neoplasm malignant
     Dosage: 180MG ORAL?? TAKE 2 CAPSULES BY MOUTH DAILY FOR 5 DAYS FOLLOWED BY 30 DAY BREAK
     Route: 048
     Dates: start: 20210223

REACTIONS (2)
  - Seizure [None]
  - Therapy interrupted [None]
